FAERS Safety Report 4686769-X (Version None)
Quarter: 2005Q2

REPORT INFORMATION
  Report Type: 
  Country: None (occurrence: None)
  Receive Date: 20050608
  Receipt Date: 20050524
  Transmission Date: 20051028
  Serious: Yes (Other)
  Sender: FDA-Public Use
  Company Number: 2005-128430-NL

PATIENT
  Age: 32 Year
  Sex: Female

DRUGS (2)
  1. FOLLITROPIN BETA [Suspect]
     Indication: OVARIAN DISORDER
     Dosage: 50 IU
     Dates: start: 20050510, end: 20050510
  2. FOLIC ACID [Concomitant]

REACTIONS (4)
  - ARTHRALGIA [None]
  - GENERALISED ERYTHEMA [None]
  - OEDEMA PERIPHERAL [None]
  - PRURITUS GENERALISED [None]
